FAERS Safety Report 18932835 (Version 1)
Quarter: 2021Q1

REPORT INFORMATION
  Report Type: Spontaneous
  Country: FR (occurrence: FR)
  Receive Date: 20210224
  Receipt Date: 20210224
  Transmission Date: 20210420
  Serious: Yes (Hospitalization)
  Sender: FDA-Public Use
  Company Number: FR-SUN PHARMACEUTICAL INDUSTRIES LTD-2021RR-282737

PATIENT
  Age: 87 Year
  Sex: Female
  Weight: 61 kg

DRUGS (2)
  1. AMOXICILLINE ACIDE CLAVULANIQUE BIOGARAN [Suspect]
     Active Substance: AMOXICILLIN\CLAVULANIC ACID
     Indication: PNEUMONIA
     Dosage: 3 DOSAGE FORM, DAILY
     Route: 048
     Dates: start: 20210108, end: 20210116
  2. PARACETAMOL [Suspect]
     Active Substance: ACETAMINOPHEN
     Indication: PNEUMONIA
     Dosage: 4 DOSAGE FORM, DAILY
     Route: 048
     Dates: start: 20210108, end: 20210117

REACTIONS (1)
  - Cholestatic liver injury [Recovering/Resolving]

NARRATIVE: CASE EVENT DATE: 20210117
